FAERS Safety Report 6238613-7 (Version None)
Quarter: 2009Q2

REPORT INFORMATION
  Report Type: 
  Country: None (occurrence: None)
  Receive Date: 20090622
  Receipt Date: 20090616
  Transmission Date: 20091009
  Serious: Yes (Hospitalization, Other)
  Sender: FDA-Public Use
  Company Number: US-ASTRAZENECA-2008UW26529

PATIENT
  Age: 35 Year
  Sex: Female
  Weight: 75.7 kg

DRUGS (12)
  1. SEROQUEL [Suspect]
     Indication: BIPOLAR DISORDER
     Dosage: 200 MG TO 300 MG
     Route: 048
     Dates: start: 20040228, end: 20080701
  2. SEROQUEL [Suspect]
     Indication: DEPRESSION
     Dosage: 200 MG TO 300 MG
     Route: 048
     Dates: start: 20040228, end: 20080701
  3. ABILIFY [Concomitant]
     Dosage: 5 MG TO 10 MG
     Dates: start: 20080601, end: 20081101
  4. FLUOXETINE [Concomitant]
     Dosage: 20MG TO 40 MG
     Dates: start: 20030201, end: 20080201
  5. WELLBUTRIN [Concomitant]
     Dates: start: 20030201
  6. DEPAKOTE [Concomitant]
     Dates: start: 20030201
  7. TRAZODONE HCL [Concomitant]
     Dosage: 50 MG TO 150 MG
     Dates: start: 20030301, end: 20080801
  8. CLONAZEPAM [Concomitant]
     Dosage: 0.5 MG TO 1 MG
     Dates: start: 20040501, end: 20080801
  9. CYMBALTA [Concomitant]
     Dates: start: 20080701, end: 20080801
  10. LORAZEPAM [Concomitant]
     Dates: start: 20080501
  11. ZOLOFT [Concomitant]
     Dates: start: 20021203
  12. AMITRIPTYLINE HCL [Concomitant]
     Dosage: 10 MG TO 50 MG
     Dates: start: 20041101, end: 20071001

REACTIONS (12)
  - BACK PAIN [None]
  - BIPOLAR DISORDER [None]
  - DEPRESSION [None]
  - DYSPNOEA [None]
  - EPILEPSY [None]
  - FACE INJURY [None]
  - GASTRIC ULCER [None]
  - MIGRAINE [None]
  - NEPHROLITHIASIS [None]
  - PAIN [None]
  - SUICIDAL IDEATION [None]
  - TYPE 2 DIABETES MELLITUS [None]
